FAERS Safety Report 23924748 (Version 2)
Quarter: 2024Q3

REPORT INFORMATION
  Report Type: Spontaneous
  Country: US (occurrence: US)
  Receive Date: 20240531
  Receipt Date: 20240919
  Transmission Date: 20241016
  Serious: Yes (Hospitalization)
  Sender: ROCHE
  Company Number: US-ROCHE-3568856

PATIENT
  Age: 4 Year
  Sex: Male
  Weight: 13.02 kg

DRUGS (3)
  1. HEMLIBRA [Suspect]
     Active Substance: EMICIZUMAB-KXWH
     Indication: Factor VIII deficiency
     Dosage: YES
     Route: 058
     Dates: start: 202401
  2. HEMLIBRA [Suspect]
     Active Substance: EMICIZUMAB-KXWH
     Indication: Von Willebrand^s disease
     Dosage: YES
     Route: 058
     Dates: start: 202401
  3. ALPHANATE [Concomitant]
     Active Substance: HUMAN COAGULATION FACTOR VIII/VON WILLEBRAND FACTOR COMPLEX

REACTIONS (2)
  - Mouth haemorrhage [Unknown]
  - Tooth infection [Unknown]

NARRATIVE: CASE EVENT DATE: 20240904
